FAERS Safety Report 9080586 (Version 2)
Quarter: 2013Q2

REPORT INFORMATION
  Report Type: Spontaneous
  Country: FR (occurrence: FR)
  Receive Date: 20130218
  Receipt Date: 20130412
  Transmission Date: 20140414
  Serious: Yes (Hospitalization, Other)
  Sender: FDA-Public Use
  Company Number: FR-BRISTOL-MYERS SQUIBB COMPANY-17339631

PATIENT
  Age: 52 Year
  Sex: Female

DRUGS (12)
  1. HYDROCORTISONE [Concomitant]
     Indication: ADRENAL INSUFFICIENCY
     Dosage: 10 MG?5DF=50 GM
     Route: 048
  2. OMACOR [Concomitant]
     Indication: HYPERTRIGLYCERIDAEMIA
     Dosage: 1 GRAM CAP
     Route: 048
  3. DURAGESIC [Concomitant]
     Dosage: 1 PATCH
     Route: 062
  4. LIPANTHYL [Concomitant]
     Indication: HYPERTRIGLYCERIDAEMIA
     Dosage: 160 MG TABLET
     Route: 048
     Dates: start: 2012
  5. ZOPHREN [Concomitant]
     Indication: GASTROINTESTINAL DISORDER
     Dosage: 6 MG TAB?3DF: 24 MG
     Route: 048
  6. ARIXTRA [Concomitant]
     Dosage: 2.5 MG/ 0.5 ML SOLUTION FOR INJECTION
     Route: 058
  7. MOTILIUM [Concomitant]
     Dosage: 3 DF DAILY WHEN NEEDED
     Route: 048
     Dates: start: 20130114
  8. SEROPRAM [Concomitant]
     Dosage: 20 MG TABLET
     Route: 048
     Dates: start: 20130114
  9. DOLIPRANE [Concomitant]
     Indication: GASTROINTESTINAL DISORDER
     Dosage: 1 G TABLET
     Route: 048
     Dates: start: 20130114
  10. LEXOMIL [Concomitant]
     Dosage: 12 MG TABLET
     Dates: start: 20130114
  11. LISODREN TABS 500 MG [Suspect]
     Indication: ADRENOCORTICAL CARCINOMA
     Route: 048
     Dates: start: 201201, end: 20130102
  12. EUPANTOL [Suspect]
     Route: 048

REACTIONS (4)
  - Pancreatitis [Not Recovered/Not Resolved]
  - Renal failure acute [Unknown]
  - Hypertriglyceridaemia [Recovering/Resolving]
  - Dialysis [None]
